FAERS Safety Report 14163878 (Version 1)
Quarter: 2017Q4

REPORT INFORMATION
  Report Type: Report from Study
  Country: NO (occurrence: NO)
  Receive Date: 20171106
  Receipt Date: 20171106
  Transmission Date: 20180321
  Serious: Yes (Other)
  Sender: FDA-Public Use
  Company Number: NO-TAKEDA-2017TUS022902

PATIENT
  Sex: Female
  Weight: 49 kg

DRUGS (1)
  1. VEDOLIZUMAB [Suspect]
     Active Substance: VEDOLIZUMAB
     Indication: GRAFT VERSUS HOST DISEASE IN GASTROINTESTINAL TRACT
     Dosage: 600 MG, UNK
     Route: 042
     Dates: start: 20170913, end: 20170927

REACTIONS (1)
  - Cytomegalovirus colitis [Not Recovered/Not Resolved]

NARRATIVE: CASE EVENT DATE: 20171003
